FAERS Safety Report 5725463-0 (Version None)
Quarter: 2008Q2

REPORT INFORMATION
  Report Type: 
  Country: None (occurrence: None)
  Receive Date: 20080501
  Receipt Date: 20080423
  Transmission Date: 20081010
  Serious: Yes (Other)
  Sender: FDA-Public Use
  Company Number: US-PFIZER INC-2008035756

PATIENT
  Sex: Male
  Weight: 96.2 kg

DRUGS (3)
  1. LIPITOR [Suspect]
     Indication: BLOOD CHOLESTEROL INCREASED
  2. WARFARIN SODIUM [Concomitant]
  3. NEXIUM [Concomitant]

REACTIONS (2)
  - CATARACT [None]
  - GLAUCOMA [None]
